FAERS Safety Report 5335307-7 (Version None)
Quarter: 2007Q2

REPORT INFORMATION
  Report Type: 
  Country: None (occurrence: None)
  Receive Date: 20070525
  Receipt Date: 20070514
  Transmission Date: 20071010
  Serious: Yes (Other)
  Sender: FDA-Public Use
  Company Number: DE-PFIZER INC-2007035680

PATIENT
  Sex: Male

DRUGS (4)
  1. CABASERIL [Suspect]
     Indication: PARKINSON'S DISEASE
     Dosage: DAILY DOSE:4MG
     Route: 048
     Dates: start: 20060301, end: 20070426
  2. L-DOPA [Concomitant]
     Route: 048
  3. ENTACAPONE [Concomitant]
  4. RASAGILINE [Concomitant]

REACTIONS (2)
  - CARDIAC VALVE DISEASE [None]
  - ENDOCARDIAL DISEASE [None]
